FAERS Safety Report 22222211 (Version 1)
Quarter: 2023Q2

REPORT INFORMATION
  Report Type: Spontaneous
  Country: US (occurrence: None)
  Receive Date: 20230418
  Receipt Date: 20230418
  Transmission Date: 20230721
  Serious: Yes (Other)
  Sender: FDA-Public Use
  Company Number: US-Hikma Pharmaceuticals USA Inc.-US-H14001-23-01166

PATIENT
  Sex: Female

DRUGS (1)
  1. PREDNISONE [Suspect]
     Active Substance: PREDNISONE
     Indication: Product used for unknown indication
     Dosage: UNKNOWN
     Route: 065

REACTIONS (21)
  - Nephritis [Unknown]
  - Weight fluctuation [Unknown]
  - Pain [Unknown]
  - Arthralgia [Unknown]
  - Skin injury [Unknown]
  - Rash [Unknown]
  - Pruritus [Unknown]
  - Noninfective encephalitis [Unknown]
  - Systemic lupus erythematosus [Unknown]
  - Fatigue [Unknown]
  - Alopecia [Unknown]
  - Bone disorder [Unknown]
  - Eating disorder [Unknown]
  - Arthritis [Unknown]
  - Organ failure [Unknown]
  - Hallucination [Unknown]
  - Stomatitis [Unknown]
  - Depression [Unknown]
  - Skin atrophy [Unknown]
  - Brain fog [Unknown]
  - Drug ineffective [Unknown]
